FAERS Safety Report 23533328 (Version 3)
Quarter: 2024Q1

REPORT INFORMATION
  Report Type: Spontaneous
  Country: US (occurrence: None)
  Receive Date: 20240216
  Receipt Date: 20240321
  Transmission Date: 20240410
  Serious: Yes (Hospitalization)
  Sender: FDA-Public Use
  Company Number: US-FARMAPROD-202402-0405

PATIENT
  Sex: Female
  Weight: 43.584 kg

DRUGS (17)
  1. OXERVATE [Suspect]
     Active Substance: CENEGERMIN-BKBJ
     Indication: Neurotrophic keratopathy
     Route: 047
     Dates: start: 20230309, end: 20230504
  2. OXERVATE [Suspect]
     Active Substance: CENEGERMIN-BKBJ
     Route: 047
     Dates: start: 20240111
  3. VITAMIN B12 [Concomitant]
     Active Substance: CYANOCOBALAMIN
  4. TIMOLOL MALEATE [Concomitant]
     Active Substance: TIMOLOL MALEATE
  5. VITAMIN C [Concomitant]
     Active Substance: ASCORBIC ACID
  6. LANTUS [Concomitant]
     Active Substance: INSULIN GLARGINE
  7. NITROGLYCERIN [Concomitant]
     Active Substance: NITROGLYCERIN
  8. ATORVASTATIN CALCIUM [Concomitant]
     Active Substance: ATORVASTATIN CALCIUM
  9. TOVIAZ [Concomitant]
     Active Substance: FESOTERODINE FUMARATE
     Dosage: EXTENDED RELEASE OF 24 HOURS
  10. METOPROLOL SUCCINATE [Concomitant]
     Active Substance: METOPROLOL SUCCINATE
     Dosage: 24 HOURS
  11. ELIQUIS [Concomitant]
     Active Substance: APIXABAN
  12. OMEPRAZOLE [Concomitant]
     Active Substance: OMEPRAZOLE
  13. SENOKOT [Concomitant]
     Active Substance: SENNOSIDES
  14. TASIGNA [Concomitant]
     Active Substance: NILOTINIB
  15. NOVOLOG [Concomitant]
     Active Substance: INSULIN ASPART
  16. LATANOPROST [Concomitant]
     Active Substance: LATANOPROST
  17. DEXAMETHASONE SODIUM PHOSPHATE [Concomitant]
     Active Substance: DEXAMETHASONE PHOSPHATE\DEXAMETHASONE SODIUM PHOSPHATE

REACTIONS (5)
  - Acute myocardial infarction [Unknown]
  - Chest pain [Recovered/Resolved]
  - Confusional state [Recovered/Resolved]
  - Hospitalisation [Recovered/Resolved]
  - Product dose omission issue [Unknown]
